FAERS Safety Report 6711034-6 (Version None)
Quarter: 2010Q2

REPORT INFORMATION
  Report Type: 
  Country: None (occurrence: None)
  Receive Date: 20100505
  Receipt Date: 20100426
  Transmission Date: 20101027
  Serious: Yes (Hospitalization)
  Sender: FDA-Public Use
  Company Number: FR-JNJFOC-20100406424

PATIENT
  Sex: Male

DRUGS (3)
  1. DURAGESIC-100 [Suspect]
     Indication: DRUG USE FOR UNKNOWN INDICATION
     Route: 062
     Dates: end: 20090825
  2. DURAGESIC-100 [Suspect]
     Route: 062
     Dates: end: 20090825
  3. ACTISKENAN [Suspect]
     Indication: DRUG USE FOR UNKNOWN INDICATION
     Route: 048
     Dates: start: 20090801, end: 20090825

REACTIONS (5)
  - AMNESIA [None]
  - CONFUSIONAL STATE [None]
  - ENCEPHALOPATHY [None]
  - HEMIPARESIS [None]
  - TREMOR [None]
